FAERS Safety Report 23326601 (Version 1)
Quarter: 2023Q4

REPORT INFORMATION
  Report Type: Spontaneous
  Country: US (occurrence: US)
  Receive Date: 20231221
  Receipt Date: 20231221
  Transmission Date: 20240110
  Serious: No
  Sender: FDA-Public Use
  Company Number: US-PFIZER INC-202300449629

PATIENT
  Age: 59 Year
  Sex: Female

DRUGS (1)
  1. PAXLOVID [Suspect]
     Active Substance: NIRMATRELVIR\RITONAVIR
     Indication: COVID-19 treatment
     Dosage: UNK

REACTIONS (7)
  - Malaise [Unknown]
  - Dizziness [Unknown]
  - Fatigue [Unknown]
  - Cough [Unknown]
  - Dyspnoea [Unknown]
  - Chest discomfort [Unknown]
  - Increased viscosity of bronchial secretion [Unknown]
